FAERS Safety Report 6028705-X (Version None)
Quarter: 2008Q4

REPORT INFORMATION
  Report Type: 
  Country: None (occurrence: None)
  Receive Date: 20081222
  Receipt Date: 20081013
  Transmission Date: 20090506
  Serious: No
  Sender: FDA-Public Use
  Company Number: ALL1-2008-02964

PATIENT
  Age: 34 Year
  Sex: Male
  Weight: 93 kg

DRUGS (1)
  1. VYVANSE [Suspect]
     Indication: ATTENTION DEFICIT/HYPERACTIVITY DISORDER
     Dosage: 30 MG, 1X/DAY:QD, ORAL
     Route: 048
     Dates: start: 20081009

REACTIONS (8)
  - ANOREXIA [None]
  - FATIGUE [None]
  - INSOMNIA [None]
  - LIBIDO DECREASED [None]
  - MOOD SWINGS [None]
  - PSYCHOMOTOR HYPERACTIVITY [None]
  - THIRST [None]
  - WEIGHT DECREASED [None]
